FAERS Safety Report 25508030 (Version 3)
Quarter: 2025Q4

REPORT INFORMATION
  Report Type: Spontaneous
  Country: JP (occurrence: JP)
  Receive Date: 20250703
  Receipt Date: 20251224
  Transmission Date: 20260118
  Serious: Yes (Death, Other)
  Sender: GENMAB
  Company Number: JP-GENMAB-2025-01877

PATIENT
  Age: 69 Year
  Sex: Male

DRUGS (10)
  1. EPKINLY [Suspect]
     Active Substance: EPCORITAMAB-BYSP
     Indication: Diffuse large B-cell lymphoma refractory
     Dosage: 0.16 MILLIGRAM, SINGLE
     Route: 058
     Dates: start: 20250613, end: 20250613
  2. EPKINLY [Suspect]
     Active Substance: EPCORITAMAB-BYSP
     Dosage: 0.8 MILLIGRAM, SINGLE
     Route: 058
     Dates: start: 20250620, end: 20250620
  3. EPKINLY [Suspect]
     Active Substance: EPCORITAMAB-BYSP
     Dosage: 48 MILLIGRAM, SINGLE
     Route: 058
     Dates: start: 20250626, end: 20250626
  4. METHYLPREDNISOLONE [Concomitant]
     Active Substance: METHYLPREDNISOLONE
     Indication: Prophylaxis
     Dosage: 1000 MILLIGRAM/DAY, INJECTION, ON DAY 1 AND DAY 2 OF ADMINISTRATION OF EPKINLY, AT THE FIRST ADMINIS
     Dates: start: 20250613, end: 20250614
  5. METHYLPREDNISOLONE [Concomitant]
     Active Substance: METHYLPREDNISOLONE
     Indication: Pneumonia
     Dosage: 60 MILLIGRAM/DAY, INJECTION, ON DAY 3 AND DAY 4 OF ADMINISTRATION OF EPKINLY, AT THE FIRST ADMINISTR
     Dates: start: 20250615, end: 20250626
  6. SULFAMETHOXAZOLE\TRIMETHOPRIM [Concomitant]
     Active Substance: SULFAMETHOXAZOLE\TRIMETHOPRIM
     Indication: Prophylaxis
     Dosage: UNK
  7. IRRADIATED PLATELET CONCENTRATE-LEUKOCYTES REDUCED [Concomitant]
     Dosage: UNK, SYSTEMIC THERAPY
  8. HUMAN RED BLOOD CELL [Concomitant]
     Active Substance: HUMAN RED BLOOD CELL
     Dosage: UNK, SYSTEMIC THERAPY
  9. CEFEPIME [Concomitant]
     Active Substance: CEFEPIME HYDROCHLORIDE
     Dosage: UNK, SYSTEMIC THERAPY
  10. PIPERACILLIN SODIUM\TAZOBACTAM SODIUM [Concomitant]
     Active Substance: PIPERACILLIN SODIUM\TAZOBACTAM SODIUM
     Dosage: UNK, SYSTEMIC THERAPY

REACTIONS (2)
  - Cytomegalovirus infection reactivation [Unknown]
  - Diffuse large B-cell lymphoma refractory [Fatal]

NARRATIVE: CASE EVENT DATE: 20250601
